FAERS Safety Report 7928205 (Version 6)
Quarter: 2013Q1

REPORT INFORMATION
  Report Type: Report from Study
  Country: US (occurrence: US)
  Receive Date: 20110503
  Receipt Date: 20130206
  Transmission Date: 20140127
  Serious: Yes (Hospitalization, Other)
  Sender: FDA-Public Use
  Company Number: US-BRISTOL-MYERS SQUIBB COMPANY-15705379

PATIENT
  Age: 63 Year
  Sex: Male

DRUGS (4)
  1. IPILIMUMAB [Suspect]
     Indication: MALIGNANT MELANOMA
     Dosage: INTER ON:05 JAN10.
     Route: 042
     Dates: start: 20100510
  2. LEVETIRACETAM [Concomitant]
  3. GABAPENTIN [Concomitant]
  4. SERTRALINE [Concomitant]

REACTIONS (2)
  - Cerebellar haematoma [Not Recovered/Not Resolved]
  - Thrombocytopenia [Recovered/Resolved]
